FAERS Safety Report 4864830-4 (Version None)
Quarter: 2005Q4

REPORT INFORMATION
  Report Type: 
  Country: None (occurrence: None)
  Receive Date: 20051201
  Receipt Date: 20050707
  Transmission Date: 20060501
  Serious: No
  Sender: FDA-Public Use
  Company Number: 2005PV000292

PATIENT
  Age: 55 Year
  Sex: Female
  Weight: 108.8633 kg

DRUGS (6)
  1. BYETTA [Suspect]
     Indication: DIABETES MELLITUS NON-INSULIN-DEPENDENT
     Dosage: 5 UG; BID; SC
     Route: 058
     Dates: start: 20050629, end: 20050707
  2. METFORMIN HCL [Concomitant]
  3. ALTACE [Concomitant]
  4. LEXAPRO [Concomitant]
  5. VYTORIN [Concomitant]
  6. HUMALOG MIX 75/25 [Concomitant]

REACTIONS (3)
  - INJECTION SITE BRUISING [None]
  - INJECTION SITE PRURITUS [None]
  - INJECTION SITE RASH [None]
